FAERS Safety Report 8301179-1 (Version None)
Quarter: 2012Q2

REPORT INFORMATION
  Report Type: 
  Country: None (occurrence: None)
  Receive Date: 20120420
  Receipt Date: 20120416
  Transmission Date: 20120825
  Serious: Yes (Other)
  Sender: FDA-Public Use
  Company Number: PHEH2012US004690

PATIENT
  Sex: Female
  Weight: 78.005 kg

DRUGS (2)
  1. AROMASIN [Concomitant]
  2. RECLAST [Suspect]
     Indication: OSTEOPENIA
     Dosage: UNK UKN, UNK
     Route: 042
     Dates: start: 20120201

REACTIONS (9)
  - ASTHENIA [None]
  - MYALGIA [None]
  - BURNING SENSATION [None]
  - LOCAL SWELLING [None]
  - HEADACHE [None]
  - ARTHRALGIA [None]
  - BONE PAIN [None]
  - OEDEMA PERIPHERAL [None]
  - VIRAL INFECTION [None]
